FAERS Safety Report 25740153 (Version 1)
Quarter: 2025Q3

REPORT INFORMATION
  Report Type: Spontaneous
  Country: US (occurrence: None)
  Receive Date: 20250828
  Receipt Date: 20250828
  Transmission Date: 20251021
  Serious: No
  Sender: FDA-CTU
  Company Number: None

PATIENT
  Age: 69 Year
  Sex: Female
  Weight: 75.9 kg

DRUGS (9)
  1. DIETARY SUPPLEMENT [Suspect]
     Active Substance: DIETARY SUPPLEMENT
     Dates: start: 20250615, end: 20250717
  2. ANCEF [Suspect]
     Active Substance: CEFAZOLIN SODIUM
     Dates: start: 20250724, end: 20250724
  3. ASTAXANTHIN [Concomitant]
     Active Substance: ASTAXANTHIN
  4. LYCOPENE [Concomitant]
     Active Substance: LYCOPENE
  5. ZINC [Concomitant]
     Active Substance: ZINC
  6. VITAMIN D3 [Concomitant]
     Active Substance: CHOLECALCIFEROL
  7. VITAMIN B3 [Concomitant]
     Active Substance: NIACIN
  8. VITAMIN C [Concomitant]
     Active Substance: ASCORBIC ACID
  9. VITAMIN A [Concomitant]
     Active Substance: VITAMIN A

REACTIONS (5)
  - Urosepsis [None]
  - Liver function test abnormal [None]
  - Aspartate aminotransferase increased [None]
  - Alanine aminotransferase increased [None]
  - Blood lactic acid increased [None]

NARRATIVE: CASE EVENT DATE: 20250802
